FAERS Safety Report 8404830-0 (Version None)
Quarter: 2012Q2

REPORT INFORMATION
  Report Type: 
  Country: None (occurrence: None)
  Receive Date: 20120601
  Receipt Date: 20120523
  Transmission Date: 20120825
  Serious: Yes (Other)
  Sender: FDA-Public Use
  Company Number: US-RB-040807-12

PATIENT
  Sex: Male

DRUGS (3)
  1. SUBUTEX [Suspect]
     Indication: PRODUCT USED FOR UNKNOWN INDICATION
     Dosage: UNKNOWN DOSAGE DETAILS
     Route: 065
  2. SUBOXONE [Suspect]
     Indication: PRODUCT USED FOR UNKNOWN INDICATION
     Dosage: UNKNOWN DOSAGE DETAILS
     Route: 065
  3. SUBOXONE [Suspect]
     Indication: PRODUCT USED FOR UNKNOWN INDICATION
     Dosage: UNKNOWN DOSAGE DETAILS
     Route: 065

REACTIONS (14)
  - HEPATIC NEOPLASM MALIGNANT [None]
  - BLADDER CANCER [None]
  - PSYCHOMOTOR HYPERACTIVITY [None]
  - WRONG TECHNIQUE IN DRUG USAGE PROCESS [None]
  - BACK PAIN [None]
  - BEDRIDDEN [None]
  - NEOPLASM MALIGNANT [None]
  - ASTHENIA [None]
  - HYPERSOMNIA [None]
  - THERAPEUTIC RESPONSE UNEXPECTED [None]
  - SUBSTANCE ABUSE [None]
  - RENAL CANCER [None]
  - INSOMNIA [None]
  - FATIGUE [None]
